FAERS Safety Report 19463201 (Version 3)
Quarter: 2021Q3

REPORT INFORMATION
  Report Type: Report from Study
  Country: AR (occurrence: AR)
  Receive Date: 20210625
  Receipt Date: 20210827
  Transmission Date: 20211014
  Serious: Yes (Hospitalization, Other)
  Sender: FDA-Public Use
  Company Number: NVSC2021AR139823

PATIENT
  Age: 29 Year
  Sex: Female

DRUGS (1)
  1. GILENYA [Suspect]
     Active Substance: FINGOLIMOD HYDROCHLORIDE
     Indication: MULTIPLE SCLEROSIS
     Dosage: 0.5 MG, QD
     Route: 065
     Dates: start: 20170101

REACTIONS (11)
  - Paraesthesia [Recovered/Resolved]
  - Nausea [Recovered/Resolved]
  - Vomiting [Recovered/Resolved]
  - Multiple sclerosis relapse [Unknown]
  - Vertigo [Recovered/Resolved]
  - Balance disorder [Unknown]
  - Central nervous system lesion [Unknown]
  - Paraesthesia [Recovering/Resolving]
  - Muscle tone disorder [Unknown]
  - Facial paralysis [Recovered/Resolved]
  - Strabismus [Recovered/Resolved]

NARRATIVE: CASE EVENT DATE: 202106
